FAERS Safety Report 6448225-8 (Version None)
Quarter: 2009Q4

REPORT INFORMATION
  Report Type: 
  Country: None (occurrence: None)
  Receive Date: 20091120
  Receipt Date: 20091113
  Transmission Date: 20100525
  Serious: Yes (Hospitalization)
  Sender: FDA-Public Use
  Company Number: US-ASTRAZENECA-2009SE26310

PATIENT
  Age: 30109 Day
  Sex: Female

DRUGS (5)
  1. PULMICORT RESPULES [Suspect]
     Indication: CHRONIC OBSTRUCTIVE PULMONARY DISEASE
     Route: 055
     Dates: start: 20080101
  2. LASIX [Concomitant]
  3. CARDIZEM [Concomitant]
  4. COUMADIN [Concomitant]
  5. DIOVAN [Concomitant]

REACTIONS (5)
  - CARDIAC FAILURE CONGESTIVE [None]
  - EAR PAIN [None]
  - HEADACHE [None]
  - PRURITUS [None]
  - RESPIRATORY TRACT INFECTION [None]
